FAERS Safety Report 18137233 (Version 1)
Quarter: 2020Q3

REPORT INFORMATION
  Report Type: Spontaneous
  Country: US (occurrence: US)
  Receive Date: 20200812
  Receipt Date: 20200812
  Transmission Date: 20201103
  Serious: Yes (Other)
  Sender: FDA-Public Use
  Company Number: US-ROCHE-2656925

PATIENT
  Sex: Female
  Weight: 90.2 kg

DRUGS (8)
  1. CELLCEPT [Suspect]
     Active Substance: MYCOPHENOLATE MOFETIL\MYCOPHENOLATE MOFETIL HYDROCHLORIDE
     Route: 065
  2. ORENITRAM [Suspect]
     Active Substance: TREPROSTINIL
     Route: 048
  3. PREDNISONE. [Suspect]
     Active Substance: PREDNISONE
     Indication: PRODUCT USED FOR UNKNOWN INDICATION
     Dosage: 60 MG DAILY X 3 WEEEKS
     Route: 065
  4. CELLCEPT [Suspect]
     Active Substance: MYCOPHENOLATE MOFETIL\MYCOPHENOLATE MOFETIL HYDROCHLORIDE
     Indication: PRODUCT USED FOR UNKNOWN INDICATION
     Route: 065
  5. ORENITRAM [Suspect]
     Active Substance: TREPROSTINIL
     Indication: PULMONARY ARTERIAL HYPERTENSION
     Dosage: ONGOING: UNKNOWN
     Route: 048
     Dates: start: 20191010
  6. OPSUMIT [Concomitant]
     Active Substance: MACITENTAN
  7. ADCIRCA [Concomitant]
     Active Substance: TADALAFIL
  8. XARELTO [Concomitant]
     Active Substance: RIVAROXABAN

REACTIONS (7)
  - Scar [Unknown]
  - Limb discomfort [Unknown]
  - Infection [Unknown]
  - Gait disturbance [Unknown]
  - Back pain [Unknown]
  - Paraesthesia [Unknown]
  - Pulmonary function test decreased [Unknown]
